FAERS Safety Report 7556498-3 (Version None)
Quarter: 2011Q2

REPORT INFORMATION
  Report Type: 
  Country: None (occurrence: None)
  Receive Date: 20110609
  Receipt Date: 20110525
  Transmission Date: 20111010
  Serious: Yes (Other)
  Sender: FDA-Public Use
  Company Number: DSA_46805_2011

PATIENT
  Sex: Female

DRUGS (6)
  1. ENALAPRIL MALEATE [Suspect]
     Indication: HYPERTENSION
     Dosage: (5 MG, ORAL)
     Route: 048
  2. CODEINE [Concomitant]
  3. ACETAMINOPHEN [Concomitant]
  4. CITALOPRAM (CITALOPRAM) 20 MG [Suspect]
     Indication: DEPRESSION
     Dosage: (20 MG QD ORAL)
     Route: 048
     Dates: start: 20101209
  5. AMLODIPINE [Suspect]
     Indication: HYPERTENSION
     Dosage: (10 MG QD ORAL)
     Route: 048
     Dates: start: 20101209
  6. TRAMADOL HCL [Suspect]
     Indication: PRODUCT USED FOR UNKNOWN INDICATION
     Dosage: (1200 MG QD ORAL)
     Route: 048
     Dates: start: 20101209

REACTIONS (2)
  - DRUG EXPOSURE DURING PREGNANCY [None]
  - ABORTION SPONTANEOUS [None]
